FAERS Safety Report 5745505-6 (Version None)
Quarter: 2008Q2

REPORT INFORMATION
  Report Type: 
  Country: None (occurrence: None)
  Receive Date: 20080519
  Receipt Date: 20080311
  Transmission Date: 20081010
  Serious: No
  Sender: FDA-Public Use
  Company Number: TPA2007A02114

PATIENT
  Age: 75 Year
  Sex: Female
  Weight: 90.7194 kg

DRUGS (3)
  1. ROZEREM [Suspect]
     Indication: INSOMNIA
     Dosage: 8 MG, HS, PER ORAL
     Route: 048
     Dates: start: 20070101, end: 20070101
  2. LIPITOR [Concomitant]
  3. ATENOLOL [Concomitant]

REACTIONS (2)
  - FEELING ABNORMAL [None]
  - INITIAL INSOMNIA [None]
